FAERS Safety Report 7795313 (Version 9)
Quarter: 2012Q4

REPORT INFORMATION
  Report Type: 
  Country: US (occurrence: US)
  Receive Date: 20110202
  Receipt Date: 20120910
  Transmission Date: 20130627
  Serious: Yes (Hospitalization, Other)
  Sender: FDA-Public Use
  Company Number: US-BIOGENIDEC-2011BI002650

PATIENT
  Age: 48 Year
  Sex: Male
  Weight: 114 kg

DRUGS (6)
  1. TYSABRI [Suspect]
     Indication: MULTIPLE SCLEROSIS
     Route: 042
     Dates: start: 20061208, end: 20101228
  2. ADDERALL [Concomitant]
     Route: 048
  3. CIALIS [Concomitant]
  4. OMEGA 3 FISH OIL [Concomitant]
  5. PREDNISONE [Concomitant]
  6. ST. JOHN^S WORT [Concomitant]

REACTIONS (1)
  - Progressive multifocal leukoencephalopathy [Not Recovered/Not Resolved]
